FAERS Safety Report 7599318-3 (Version None)
Quarter: 2011Q3

REPORT INFORMATION
  Report Type: 
  Country: None (occurrence: None)
  Receive Date: 20110711
  Receipt Date: 20110701
  Transmission Date: 20111222
  Serious: Yes (Hospitalization, Other)
  Sender: FDA-Public Use
  Company Number: DE-BAYER-2011-039060

PATIENT
  Age: 16 Year
  Sex: Female
  Weight: 42 kg

DRUGS (1)
  1. YAZ [Suspect]
     Indication: CONTRACEPTION
     Dosage: UNK
     Dates: start: 20081001, end: 20110423

REACTIONS (9)
  - WEIGHT DECREASED [None]
  - IRRITABLE BOWEL SYNDROME [None]
  - DIARRHOEA [None]
  - CACHEXIA [None]
  - ALOPECIA [None]
  - HYPOKALAEMIA [None]
  - CIRCULATORY COLLAPSE [None]
  - MIGRAINE [None]
  - BLADDER DISORDER [None]
